FAERS Safety Report 24416926 (Version 5)
Quarter: 2025Q3

REPORT INFORMATION
  Report Type: Spontaneous
  Country: US (occurrence: US)
  Receive Date: 20241009
  Receipt Date: 20250820
  Transmission Date: 20251020
  Serious: No
  Sender: ROCHE
  Company Number: US-ROCHE-10000102036

PATIENT
  Age: 4 Year
  Sex: Male
  Weight: 15.69 kg

DRUGS (1)
  1. HEMLIBRA [Suspect]
     Active Substance: EMICIZUMAB-KXWH
     Indication: Factor VIII deficiency
     Dosage: STRENGTH- 105MG/0.7ML
     Route: 058
     Dates: start: 202207

REACTIONS (6)
  - Head injury [Unknown]
  - Haemorrhage [Recovered/Resolved]
  - Off label use [Unknown]
  - Haemorrhage [Unknown]
  - Haemorrhage [Unknown]
  - Epistaxis [Unknown]

NARRATIVE: CASE EVENT DATE: 20240925
